FAERS Safety Report 19628463 (Version 4)
Quarter: 2022Q1

REPORT INFORMATION
  Report Type: Spontaneous
  Country: IN (occurrence: IN)
  Receive Date: 20210728
  Receipt Date: 20220304
  Transmission Date: 20220423
  Serious: Yes (Hospitalization)
  Sender: FDA-Public Use
  Company Number: IN-PFIZER INC-2021003890

PATIENT
  Age: 45 Year
  Sex: Female
  Weight: 71 kg

DRUGS (9)
  1. PALBOCICLIB [Suspect]
     Active Substance: PALBOCICLIB
     Indication: Breast cancer metastatic
     Dosage: 125 MG, CYCLIC (DAILY FOR 21 DAYS THEN 7 DAYS OFF)
     Route: 048
     Dates: start: 20200411
  2. LETROZOLE [Concomitant]
     Active Substance: LETROZOLE
     Dosage: 2.5 MG, DAILY
  3. ZOLEDRONIC ACID [Concomitant]
     Active Substance: ZOLEDRONIC ACID
     Dosage: 4 MG (NS 100ML OVER HALF HOUR)
  4. ZOLEDRONIC ACID [Concomitant]
     Active Substance: ZOLEDRONIC ACID
     Dosage: 4 MG, MONTHLY( IN NS 100ML OVER 1 /2 HOUR ONCE A MONTH)
  5. Cadcal [Concomitant]
     Dosage: UNK, DAILY
  6. FERROUS ASCORBATE [Concomitant]
     Active Substance: FERROUS ASCORBATE
     Dosage: UNK, DAILY
  7. ELDERVIT [ASCORBIC ACID] [Concomitant]
     Dosage: UNK, CYCLIC (EVERY 15 DAYS)
     Route: 030
  8. SODIUM CHLORIDE [Concomitant]
     Active Substance: SODIUM CHLORIDE
     Dosage: 100 ML
  9. MUCOMIX [Concomitant]
     Dosage: 600 UNK

REACTIONS (4)
  - Cough [Unknown]
  - Blood pressure increased [Unknown]
  - Weight decreased [Unknown]
  - Off label use [Unknown]
